FAERS Safety Report 8510398-0 (Version None)
Quarter: 2012Q3

REPORT INFORMATION
  Report Type: 
  Country: None (occurrence: None)
  Receive Date: 20120713
  Receipt Date: 20120711
  Transmission Date: 20120928
  Serious: No
  Sender: FDA-Public Use
  Company Number: US-B.I. PHARMACEUTICALS,INC./RIDGEFIELD-2011-BP-17469BP

PATIENT
  Sex: Female

DRUGS (17)
  1. SYNTHROID [Concomitant]
     Indication: HYPOTHYROIDISM
     Dosage: 75 MG
     Route: 048
  2. VITAMIN B-12 [Concomitant]
     Indication: VITAMIN SUPPLEMENTATION
     Route: 048
  3. BIOTIN [Concomitant]
     Indication: VITAMIN SUPPLEMENTATION
     Route: 048
  4. MELATONIN [Concomitant]
     Indication: INSOMNIA
     Route: 048
  5. DIGOXIN [Concomitant]
     Indication: CARDIAC ASSISTANCE DEVICE USER
     Dosage: 125 MCG
     Route: 048
     Dates: start: 20110601
  6. PRAVASTATIN [Concomitant]
     Indication: BLOOD CHOLESTEROL INCREASED
     Route: 048
  7. VITAMIN D [Concomitant]
     Indication: VITAMIN SUPPLEMENTATION
     Route: 048
  8. MULTI-VITAMIN [Concomitant]
     Indication: VITAMIN SUPPLEMENTATION
     Route: 048
  9. LATANOPROST [Concomitant]
     Indication: GLAUCOMA
     Dosage: 0.005 MG
  10. PRADAXA [Suspect]
     Indication: CARDIAC ASSISTANCE DEVICE USER
  11. METOPROLOL TARTRATE [Concomitant]
     Indication: HYPERTENSION
     Route: 048
  12. CALCIUM [Concomitant]
     Indication: VITAMIN SUPPLEMENTATION
     Route: 048
  13. FOLIC ACID [Concomitant]
     Indication: VITAMIN SUPPLEMENTATION
     Route: 048
  14. ASACOL [Concomitant]
     Indication: COLITIS ULCERATIVE
     Dosage: 800 MG
     Route: 048
  15. TIMOLO/EYE DROPS [Concomitant]
     Indication: GLAUCOMA
  16. ACETAMINOPHEN [Concomitant]
     Indication: ANALGESIC THERAPY
     Route: 048
  17. PRADAXA [Suspect]
     Indication: ATRIAL FIBRILLATION
     Dosage: 300 MG
     Route: 048
     Dates: start: 20110624

REACTIONS (10)
  - DYSPEPSIA [None]
  - FEELING ABNORMAL [None]
  - ANXIETY [None]
  - VERTIGO [None]
  - MUSCLE SPASMS [None]
  - CONFUSIONAL STATE [None]
  - SENSATION OF FOREIGN BODY [None]
  - PELVI-URETERIC OBSTRUCTION [None]
  - ERUCTATION [None]
  - HYDRONEPHROSIS [None]
